FAERS Safety Report 20850213 (Version 1)
Quarter: 2022Q2

REPORT INFORMATION
  Report Type: Spontaneous
  Country: US (occurrence: US)
  Receive Date: 20220519
  Receipt Date: 20220519
  Transmission Date: 20220720
  Serious: Yes (Life-Threatening, Hospitalization, Disabling, Other)
  Sender: FDA-Public Use
  Company Number: US-JNJFOC-20220531489

PATIENT
  Age: 74 Year
  Sex: Female
  Weight: 45.037 kg

DRUGS (16)
  1. REMICADE [Suspect]
     Active Substance: INFLIXIMAB
     Indication: Diarrhoea
     Route: 042
  2. PEMBROLIZUMAB [Suspect]
     Active Substance: PEMBROLIZUMAB
     Indication: Malignant melanoma
     Route: 042
     Dates: start: 20211222, end: 20220201
  3. PREDNISONE [Concomitant]
     Active Substance: PREDNISONE
     Dates: start: 20220214
  4. PREDNISONE [Concomitant]
     Active Substance: PREDNISONE
     Dates: start: 2017
  5. ATORVASTATIN [Concomitant]
     Active Substance: ATORVASTATIN
     Dates: start: 2017
  6. BUTALBITAL, ASPIRIN, CAFFEINE AND CODEINE PHOSPHATE [Concomitant]
     Active Substance: ASPIRIN\BUTALBITAL\CAFFEINE\CODEINE PHOSPHATE
     Dates: start: 2000
  7. DICYCLOMINE HYDROCHLORIDE [Concomitant]
     Active Substance: DICYCLOMINE HYDROCHLORIDE
     Dates: start: 2017
  8. DILTIAZEM [Concomitant]
     Active Substance: DILTIAZEM
     Dates: start: 2017
  9. LEVOTHYROXINE [Concomitant]
     Active Substance: LEVOTHYROXINE
     Dates: start: 2019
  10. MECLIZINE [Concomitant]
     Active Substance: MECLIZINE HYDROCHLORIDE
     Dates: start: 2016
  11. ONDANSETRON [Concomitant]
     Active Substance: ONDANSETRON
     Dates: start: 2020
  12. TEMAZEPAM [Concomitant]
     Active Substance: TEMAZEPAM
     Dates: start: 2020
  13. ACETAMINOPHEN [Concomitant]
     Active Substance: ACETAMINOPHEN
     Dates: start: 2000
  14. LORAZEPAM [Concomitant]
     Active Substance: LORAZEPAM
     Dates: start: 2017
  15. LOPERAMIDE [Concomitant]
     Active Substance: LOPERAMIDE
     Dates: start: 20220213
  16. ASPIRIN [Concomitant]
     Active Substance: ASPIRIN
     Dates: start: 2017

REACTIONS (14)
  - Embolic stroke [Recovered/Resolved]
  - Diarrhoea [Recovered/Resolved]
  - Mental impairment [Recovering/Resolving]
  - Respiratory failure [Unknown]
  - Pulmonary embolism [Unknown]
  - Haematochezia [Unknown]
  - Metastases to central nervous system [Unknown]
  - Pneumonia [Unknown]
  - Pneumocystis jirovecii infection [Unknown]
  - Anal incontinence [Unknown]
  - Oral candidiasis [Unknown]
  - Urinary tract infection [Unknown]
  - Product use in unapproved indication [Unknown]
  - Off label use [Unknown]

NARRATIVE: CASE EVENT DATE: 20220315
